FAERS Safety Report 23375082 (Version 2)
Quarter: 2024Q1

REPORT INFORMATION
  Report Type: Spontaneous
  Country: JP (occurrence: JP)
  Receive Date: 20240106
  Receipt Date: 20240229
  Transmission Date: 20240409
  Serious: Yes (Death, Other)
  Sender: FDA-Public Use
  Company Number: JP-ABBVIE-5574634

PATIENT
  Age: 78 Year
  Sex: Female

DRUGS (1)
  1. ASENAPINE MALEATE [Suspect]
     Active Substance: ASENAPINE MALEATE
     Indication: Product used for unknown indication
     Dosage: 5 MG UNFLAVOURED, DURATION TEXT: 1 MONTH
     Route: 048
     Dates: start: 202302, end: 202302

REACTIONS (1)
  - Neuroleptic malignant syndrome [Fatal]
